FAERS Safety Report 18739909 (Version 1)
Quarter: 2021Q1

REPORT INFORMATION
  Report Type: Spontaneous
  Country: BE (occurrence: BE)
  Receive Date: 20210114
  Receipt Date: 20210114
  Transmission Date: 20210419
  Serious: Yes (Other)
  Sender: FDA-Public Use
  Company Number: BE-BAYER-2021-000781

PATIENT
  Sex: Male

DRUGS (2)
  1. METFORMINE [METFORMIN] [Interacting]
     Active Substance: METFORMIN HYDROCHLORIDE
  2. NEXAVAR [Suspect]
     Active Substance: SORAFENIB
     Dosage: UNK

REACTIONS (1)
  - Lactic acidosis [Unknown]
